FAERS Safety Report 4330162-6 (Version None)
Quarter: 2004Q2

REPORT INFORMATION
  Report Type: 
  Country: None (occurrence: None)
  Receive Date: 20040401
  Receipt Date: 20040315
  Transmission Date: 20050107
  Serious: No
  Sender: FDA-Public Use
  Company Number: 7674

PATIENT
  Age: 69 Year
  Sex: Female

DRUGS (1)
  1. MORPHINE [Suspect]
     Dosage: 2.5 MG IT
     Route: 038

REACTIONS (10)
  - CONFUSIONAL STATE [None]
  - DECREASED ACTIVITY [None]
  - DISORIENTATION [None]
  - FATIGUE [None]
  - GROWTH HORMONE DEFICIENCY [None]
  - HALLUCINATION [None]
  - HYPOPITUITARISM [None]
  - HYPOREFLEXIA [None]
  - MAJOR DEPRESSION [None]
  - PSYCHOTIC DISORDER DUE TO A GENERAL MEDICAL CONDITION [None]
